FAERS Safety Report 5971692-0 (Version None)
Quarter: 2008Q4

REPORT INFORMATION
  Report Type: 
  Country: None (occurrence: None)
  Receive Date: 20081201
  Receipt Date: 20081114
  Transmission Date: 20090506
  Serious: Yes (Death)
  Sender: FDA-Public Use
  Company Number: US-BAYER-200838999NA

PATIENT
  Sex: Male

DRUGS (1)
  1. TRASYLOL [Suspect]
     Indication: CORONARY ARTERY BYPASS
     Route: 042
     Dates: start: 20050825

REACTIONS (8)
  - ANHEDONIA [None]
  - EMOTIONAL DISTRESS [None]
  - FEAR OF DEATH [None]
  - INJURY [None]
  - PAIN [None]
  - RENAL DISORDER [None]
  - RENAL FAILURE [None]
  - UNEVALUABLE EVENT [None]
